FAERS Safety Report 5037293-6 (Version None)
Quarter: 2006Q2

REPORT INFORMATION
  Report Type: 
  Country: None (occurrence: None)
  Receive Date: 20060601
  Receipt Date: 20060205
  Transmission Date: 20061013
  Serious: No
  Sender: FDA-Public Use
  Company Number: 2006PV008242

PATIENT
  Age: 73 Year
  Sex: Male
  Weight: 127.0072 kg

DRUGS (8)
  1. BYETTA [Suspect]
     Indication: DRUG USE FOR UNKNOWN INDICATION
     Dosage: 5 MCG;BID;SC
     Route: 058
     Dates: start: 20060102
  2. LIPITOR [Concomitant]
  3. NORVASC [Concomitant]
  4. ASPIRIN [Concomitant]
  5. TOPROL-XL [Concomitant]
  6. AVANDIA [Concomitant]
  7. IMDUR [Concomitant]
  8. LASIX [Concomitant]

REACTIONS (5)
  - CHEST PAIN [None]
  - FEELING JITTERY [None]
  - HYPERHIDROSIS [None]
  - INSOMNIA [None]
  - WEIGHT DECREASED [None]
